FAERS Safety Report 17088105 (Version 1)
Quarter: 2019Q4

REPORT INFORMATION
  Report Type: Spontaneous
  Country: IT (occurrence: IT)
  Receive Date: 20191128
  Receipt Date: 20191128
  Transmission Date: 20200122
  Serious: Yes (Hospitalization)
  Sender: FDA-Public Use
  Company Number: IT-ASTRAZENECA-2019SF66625

PATIENT
  Age: 37 Year
  Sex: Female

DRUGS (7)
  1. SERENASE [Concomitant]
     Dosage: 20.0GTT UNKNOWN
     Route: 048
  2. LARGACTIL [Suspect]
     Active Substance: CHLORPROMAZINE
     Indication: MENTAL DISORDER
     Dosage: 1500.0MG ONCE/SINGLE ADMINISTRATION
     Route: 048
     Dates: start: 20191104, end: 20191104
  3. DEPAKIN [Concomitant]
     Active Substance: VALPROATE SODIUM
     Dosage: 1500.0MG UNKNOWN
     Route: 048
  4. NOZINAN [Concomitant]
     Active Substance: LEVOMEPROMAZINE
  5. QUETIAPINE FUMARATE. [Suspect]
     Active Substance: QUETIAPINE FUMARATE
     Indication: MENTAL DISORDER
     Route: 048
     Dates: start: 20191104, end: 20191104
  6. CARDICOR [Concomitant]
     Active Substance: BISOPROLOL
  7. RIVOTRIL [Concomitant]
     Active Substance: CLONAZEPAM
     Dosage: 6.0MG UNKNOWN
     Route: 048

REACTIONS (2)
  - Drug abuse [Recovering/Resolving]
  - Somnolence [Recovering/Resolving]

NARRATIVE: CASE EVENT DATE: 20191104
